FAERS Safety Report 9201657 (Version 1)
Quarter: 2013Q1

REPORT INFORMATION
  Report Type: Spontaneous
  Country: JP (occurrence: None)
  Receive Date: 20130327
  Receipt Date: 20130327
  Transmission Date: 20140127
  Serious: Yes (Other)
  Sender: FDA-Public Use
  Company Number: JP-1197220

PATIENT
  Sex: Female

DRUGS (1)
  1. PATANOL [Suspect]
     Indication: CONJUNCTIVITIS ALLERGIC
     Route: 047

REACTIONS (1)
  - Anaphylactic reaction [None]
